FAERS Safety Report 13770448 (Version 1)
Quarter: 2017Q3

REPORT INFORMATION
  Report Type: Spontaneous
  Country: US (occurrence: US)
  Receive Date: 20170719
  Receipt Date: 20170719
  Transmission Date: 20171127
  Serious: Yes (Life-Threatening, Hospitalization, Disabling)
  Sender: FDA-Public Use
  Company Number: None

PATIENT
  Age: 55 Year
  Sex: Female
  Weight: 94.5 kg

DRUGS (4)
  1. ATIVAN [Suspect]
     Active Substance: LORAZEPAM
     Indication: DRUG THERAPY
     Dosage: ?          OTHER STRENGTH:MG;QUANTITY:1 TABLET(S);?
     Route: 048
     Dates: start: 19950101, end: 20170719
  2. EFFEXOR [Concomitant]
     Active Substance: VENLAFAXINE HYDROCHLORIDE
  3. LEVOPHYROXINE [Concomitant]
  4. OMEGA 3 [Concomitant]
     Active Substance: OMEGA-3 FATTY ACIDS

REACTIONS (30)
  - Panic attack [None]
  - Akathisia [None]
  - Anxiety [None]
  - Migraine [None]
  - Vertigo [None]
  - Impaired driving ability [None]
  - Speech disorder [None]
  - Mood swings [None]
  - Decreased activity [None]
  - Cognitive disorder [None]
  - Anosmia [None]
  - Educational problem [None]
  - General physical health deterioration [None]
  - Hypervigilance [None]
  - Tinnitus [None]
  - Dysgraphia [None]
  - Insomnia [None]
  - Neuralgia [None]
  - Partner stress [None]
  - Restless legs syndrome [None]
  - Seizure [None]
  - Nausea [None]
  - Drug tolerance [None]
  - Blindness unilateral [None]
  - Reading disorder [None]
  - Ageusia [None]
  - Bankruptcy [None]
  - Post-traumatic stress disorder [None]
  - Memory impairment [None]
  - Visual impairment [None]

NARRATIVE: CASE EVENT DATE: 19950101
